FAERS Safety Report 9757460 (Version 1)
Quarter: 2013Q4

REPORT INFORMATION
  Report Type: Spontaneous
  Country: US (occurrence: US)
  Receive Date: 20131215
  Receipt Date: 20131215
  Transmission Date: 20140711
  Serious: No
  Sender: FDA-Public Use
  Company Number: US-009507513-1312USA001228

PATIENT
  Age: 93 Year
  Sex: Male

DRUGS (3)
  1. ZIOPTAN [Suspect]
     Indication: INTRAOCULAR PRESSURE INCREASED
     Dosage: UNK, QD
     Route: 031
     Dates: start: 20131125, end: 20131128
  2. ICAPS [Concomitant]
  3. ASPIRIN [Concomitant]

REACTIONS (4)
  - Rhinorrhoea [Recovering/Resolving]
  - Vision blurred [Not Recovered/Not Resolved]
  - Eye pain [Recovering/Resolving]
  - Drug dose omission [Unknown]
